FAERS Safety Report 5615683-8 (Version None)
Quarter: 2008Q1

REPORT INFORMATION
  Report Type: 
  Country: None (occurrence: None)
  Receive Date: 20080201
  Receipt Date: 20080124
  Transmission Date: 20080703
  Serious: Yes (Other)
  Sender: FDA-Public Use
  Company Number: GXKR2008IN01099

PATIENT
  Age: 65 Year
  Sex: Male

DRUGS (7)
  1. ZOLPIDEM [Suspect]
     Indication: INSOMNIA
     Dosage: 10 MG, ONCE/SINGLE
  2. MIRTAZAPINE [Concomitant]
  3. ALPRAZOLAM [Concomitant]
  4. ASPIRIN [Concomitant]
  5. ENALAPRIL MALEATE [Concomitant]
  6. ATORVASTATIN CALCIUM [Concomitant]
  7. PANTOPRAZOLE SODIUM [Concomitant]

REACTIONS (7)
  - AGITATION [None]
  - AGNOSIA [None]
  - AMNESIA [None]
  - DELIRIUM [None]
  - DRUG TOXICITY [None]
  - INSOMNIA [None]
  - SPEECH DISORDER [None]
